FAERS Safety Report 24893012 (Version 3)
Quarter: 2025Q2

REPORT INFORMATION
  Report Type: Report from Study
  Country: CA (occurrence: CA)
  Receive Date: 20250128
  Receipt Date: 20250416
  Transmission Date: 20250717
  Serious: Yes (Other)
  Sender: TAKEDA
  Company Number: CA-TAKEDA-2025TUS005267

PATIENT
  Sex: Female

DRUGS (15)
  1. VEDOLIZUMAB [Suspect]
     Active Substance: VEDOLIZUMAB
     Indication: Crohn^s disease
  2. VEDOLIZUMAB [Suspect]
     Active Substance: VEDOLIZUMAB
  3. PREDNISONE [Suspect]
     Active Substance: PREDNISONE
     Indication: Product used for unknown indication
  4. PREDNISONE [Suspect]
     Active Substance: PREDNISONE
  5. SYNTHROID [Concomitant]
     Active Substance: LEVOTHYROXINE SODIUM
  6. ATENOLOL [Concomitant]
     Active Substance: ATENOLOL
  7. CALCIUM [Concomitant]
     Active Substance: CALCIUM
  8. LORAZEPAM [Concomitant]
     Active Substance: LORAZEPAM
     Dosage: UNK UNK, QD
  9. VITAMIN B12 [Concomitant]
     Active Substance: CYANOCOBALAMIN
  10. IRON [Concomitant]
     Active Substance: IRON
     Dosage: 300 MILLIGRAM, QD
  11. Calcitriol odan [Concomitant]
  12. PROLIA [Concomitant]
     Active Substance: DENOSUMAB
     Dosage: UNK UNK, Q6MONTHS
  13. EFUDEX [Concomitant]
     Active Substance: FLUOROURACIL
     Indication: Skin lesion
     Dosage: UNK UNK, BID
  14. TYLENOL [Concomitant]
     Active Substance: ACETAMINOPHEN
     Indication: Arthritis
     Dosage: UNK UNK, 2/WEEK
  15. CHOLECALCIFEROL [Concomitant]
     Active Substance: CHOLECALCIFEROL
     Dosage: 10000 INTERNATIONAL UNIT, 1/WEEK

REACTIONS (12)
  - Crohn^s disease [Unknown]
  - Dry mouth [Unknown]
  - Swelling face [Recovered/Resolved]
  - Musculoskeletal stiffness [Unknown]
  - Decreased appetite [Unknown]
  - Blood pressure increased [Unknown]
  - Blood calcium decreased [Unknown]
  - Blood albumin decreased [Unknown]
  - Blood magnesium decreased [Unknown]
  - Ageusia [Unknown]
  - Asthenia [Unknown]
  - Fatigue [Unknown]
